FAERS Safety Report 4360321-8 (Version None)
Quarter: 2004Q2

REPORT INFORMATION
  Report Type: 
  Country: None (occurrence: None)
  Receive Date: 20040517
  Receipt Date: 20020304
  Transmission Date: 20050107
  Serious: Yes (Other)
  Sender: FDA-Public Use
  Company Number: C02-C-002

PATIENT
  Age: 50 Year
  Sex: Female

DRUGS (1)
  1. LITHIUM CARBONATE CAP [Suspect]
     Indication: BIPOLAR I DISORDER
     Dates: start: 20020203, end: 20020303

REACTIONS (1)
  - FEELING JITTERY [None]
